FAERS Safety Report 8591020-4 (Version None)
Quarter: 2012Q3

REPORT INFORMATION
  Report Type: 
  Country: None (occurrence: None)
  Receive Date: 20120813
  Receipt Date: 20120730
  Transmission Date: 20120928
  Serious: Yes (Other)
  Sender: FDA-Public Use
  Company Number: IT-PFIZER INC-2012193376

PATIENT
  Age: 67 Year
  Sex: Female

DRUGS (8)
  1. LINEZOLID [Interacting]
     Dosage: 600 MG, ALTERNATE DAY
     Route: 065
  2. LINEZOLID [Interacting]
     Dosage: 600 MG, 1X/DAY
     Route: 065
  3. LINEZOLID [Interacting]
     Dosage: 400 MG (600 MG,1 IN 36 HR)
     Route: 065
  4. BARNIDIPINE [Interacting]
     Dosage: UNK
     Route: 065
  5. OMEPRAZOLE [Interacting]
     Dosage: UNK
     Route: 065
  6. LINEZOLID [Suspect]
     Dosage: 600 MG, 2X/DAY
     Route: 065
  7. LINEZOLID [Interacting]
     Dosage: 200 MG (600 MG,1 IN 72 HR)
     Route: 065
  8. CARVEDILOL [Interacting]
     Dosage: UNK
     Route: 065

REACTIONS (7)
  - DRUG INTERACTION [None]
  - HAEMATOTOXICITY [None]
  - HYPERLACTACIDAEMIA [None]
  - RED BLOOD CELL COUNT DECREASED [None]
  - PLATELET COUNT DECREASED [None]
  - INAPPROPRIATE SCHEDULE OF DRUG ADMINISTRATION [None]
  - HAEMOGLOBIN DECREASED [None]
